FAERS Safety Report 4783557-0 (Version None)
Quarter: 2005Q3

REPORT INFORMATION
  Report Type: 
  Country: None (occurrence: None)
  Receive Date: 20050929
  Receipt Date: 20050921
  Transmission Date: 20060218
  Serious: Yes (Other)
  Sender: FDA-Public Use
  Company Number: US-JNJFOC-20050905433

PATIENT
  Age: 66 Year
  Sex: Female

DRUGS (15)
  1. IBUPROFEN [Suspect]
     Indication: OSTEOPOROSIS
  2. FLEXERIL [Concomitant]
     Indication: PAIN
  3. ASTHMA INHALER [Concomitant]
     Indication: ASTHMA
     Route: 055
  4. HYDROCODONE [Concomitant]
     Indication: PAIN
  5. BETA CAROTENE [Concomitant]
  6. NATURAL ARTHRITIS PAIN MEDICATION [Concomitant]
  7. NON STEROIDAL ARTHRITIS PAIN MEDICATIONS [Concomitant]
  8. SELENIUM SULFIDE [Concomitant]
  9. WATER PILL [Concomitant]
     Indication: HYPERTENSION
     Route: 048
  10. GLUCOSAMINE CHONDROITIN [Concomitant]
  11. GLUCOSAMINE CHONDROITIN [Concomitant]
  12. GLUCOSAMINE CHONDROITIN [Concomitant]
  13. GLUCOSAMINE CHONDROITIN [Concomitant]
     Indication: DRUG USE FOR UNKNOWN INDICATION
  14. VITAMIN B12 COMPLEX [Concomitant]
     Indication: DRUG USE FOR UNKNOWN INDICATION
  15. FOSAMAX [Concomitant]
     Indication: DRUG USE FOR UNKNOWN INDICATION

REACTIONS (1)
  - HEPATIC STEATOSIS [None]
